FAERS Safety Report 8462793-6 (Version None)
Quarter: 2012Q2

REPORT INFORMATION
  Report Type: 
  Country: None (occurrence: None)
  Receive Date: 20120619
  Receipt Date: 20120619
  Transmission Date: 20120825
  Serious: Yes (Hospitalization)
  Sender: FDA-Public Use
  Company Number: None

PATIENT
  Age: 60 Year
  Sex: Male
  Weight: 87.5 kg

DRUGS (1)
  1. NILOTINIB [Suspect]
     Indication: LEUKAEMIA
     Dosage: 400 MG BID PO
     Route: 048
     Dates: start: 20120320, end: 20120407

REACTIONS (1)
  - PANCREATITIS [None]
